FAERS Safety Report 23773884 (Version 3)
Quarter: 2025Q2

REPORT INFORMATION
  Report Type: Report from Study
  Country: US (occurrence: US)
  Receive Date: 20240423
  Receipt Date: 20250529
  Transmission Date: 20250717
  Serious: Yes (Death)
  Sender: SCPHARMACEUTICALS
  Company Number: US-SCPHARMACEUTICALS-2024-SCPH-US000174

PATIENT
  Age: 86 Year
  Sex: Female

DRUGS (1)
  1. FUROSCIX [Suspect]
     Active Substance: FUROSEMIDE
     Indication: Cardiac failure congestive
     Route: 058
     Dates: start: 202403

REACTIONS (1)
  - Death [Fatal]

NARRATIVE: CASE EVENT DATE: 20240409
